FAERS Safety Report 22324830 (Version 1)
Quarter: 2023Q2

REPORT INFORMATION
  Report Type: Report from Study
  Country: US (occurrence: None)
  Receive Date: 20230516
  Receipt Date: 20230516
  Transmission Date: 20230722
  Serious: Yes (Death, Hospitalization, Other)
  Sender: FDA-Public Use
  Company Number: US-ROCHE-3349517

PATIENT

DRUGS (20)
  1. RITUXIMAB [Suspect]
     Active Substance: RITUXIMAB
     Indication: Burkitt^s lymphoma
     Dosage: 4 HOURS
     Route: 065
     Dates: start: 20130615, end: 20130615
  2. RITUXIMAB [Suspect]
     Active Substance: RITUXIMAB
     Dosage: 165 MIN?SUBSEQUENT DOSING ON 26/JUL/2013, 16/AUG/2013
     Route: 065
     Dates: start: 20130705, end: 20130705
  3. VINCRISTINE [Suspect]
     Active Substance: VINCRISTINE
     Indication: Burkitt^s lymphoma
     Dosage: 4 DAYS
     Route: 065
     Dates: start: 20130615, end: 20130618
  4. VINCRISTINE [Suspect]
     Active Substance: VINCRISTINE
     Dosage: 4 DAYS
     Route: 065
     Dates: start: 20130705, end: 20130708
  5. VINCRISTINE [Suspect]
     Active Substance: VINCRISTINE
     Dosage: SUBSEQUENT DOSING ON 16-AUG-2013
     Route: 065
     Dates: start: 20130726
  6. DOXORUBICIN [Suspect]
     Active Substance: DOXORUBICIN
     Indication: Burkitt^s lymphoma
     Route: 065
     Dates: start: 20130615, end: 20130618
  7. DOXORUBICIN [Suspect]
     Active Substance: DOXORUBICIN
     Dosage: 4 DAYS
     Route: 065
     Dates: start: 20130705, end: 20130708
  8. DOXORUBICIN [Suspect]
     Active Substance: DOXORUBICIN
     Dosage: 4 DAYS??SUBSEQ DOSING ON 16-08-2013
     Route: 065
     Dates: start: 20130726, end: 20130729
  9. ETOPOSIDE [Suspect]
     Active Substance: ETOPOSIDE
     Indication: Burkitt^s lymphoma
     Route: 065
     Dates: start: 20130615, end: 20130618
  10. ETOPOSIDE [Suspect]
     Active Substance: ETOPOSIDE
     Dosage: 4 DAYS
     Route: 065
     Dates: start: 20130705, end: 20130708
  11. ETOPOSIDE [Suspect]
     Active Substance: ETOPOSIDE
     Dosage: 4 DAYS?SUSEQ DOSING ON 16-08-2013
     Route: 065
     Dates: start: 20130726, end: 20130729
  12. FILGRASTIM [Suspect]
     Active Substance: FILGRASTIM
     Indication: Burkitt^s lymphoma
     Route: 065
     Dates: start: 20130620, end: 20130629
  13. FILGRASTIM [Suspect]
     Active Substance: FILGRASTIM
     Dosage: 9 DAYS
     Route: 065
     Dates: start: 20130710, end: 20130718
  14. FILGRASTIM [Suspect]
     Active Substance: FILGRASTIM
     Dosage: 10 DAYS?SUBSEQ DOSING ON 01-07-2013
     Route: 065
     Dates: start: 20130610, end: 20130619
  15. PREDNISONE [Suspect]
     Active Substance: PREDNISONE
     Indication: Burkitt^s lymphoma
     Route: 065
     Dates: start: 20130615, end: 20130619
  16. PREDNISONE [Suspect]
     Active Substance: PREDNISONE
     Dosage: 5 DAYS?SUBSEQUENT DOSING ON 16-08-2013
     Route: 065
     Dates: start: 20130705, end: 20130710
  17. PREDNISONE [Suspect]
     Active Substance: PREDNISONE
     Dosage: 5 DAYS
     Route: 065
     Dates: start: 20130726, end: 20130730
  18. CYCLOPHOSPHAMIDE [Suspect]
     Active Substance: CYCLOPHOSPHAMIDE
     Indication: Burkitt^s lymphoma
     Route: 065
     Dates: start: 20130619, end: 20130619
  19. CYCLOPHOSPHAMIDE [Suspect]
     Active Substance: CYCLOPHOSPHAMIDE
     Dosage: SUBSEQ DOSING ON 30-07-2013, 20-08-2013
     Route: 065
     Dates: start: 20130709, end: 20130709
  20. METHOTREXATE [Suspect]
     Active Substance: METHOTREXATE
     Indication: Burkitt^s lymphoma
     Dosage: SUBSEQ DOSING ON 30-07-2013, 16-08-2013, 20-08-2013
     Route: 065
     Dates: start: 20130726, end: 20130726

REACTIONS (5)
  - Diarrhoea [Recovered/Resolved]
  - Vomiting [Recovered/Resolved]
  - Nausea [Recovered/Resolved]
  - Death [Fatal]
  - Acute kidney injury [Recovered/Resolved]

NARRATIVE: CASE EVENT DATE: 20130803
